FAERS Safety Report 4417757-6 (Version None)
Quarter: 2004Q2

REPORT INFORMATION
  Report Type: 
  Country: None (occurrence: None)
  Receive Date: 20040621
  Receipt Date: 20040504
  Transmission Date: 20050107
  Serious: Yes (Other)
  Sender: FDA-Public Use
  Company Number: PHEH2004US03651

PATIENT
  Age: 75 Year
  Sex: Female

DRUGS (7)
  1. ZOMETA [Suspect]
     Indication: BREAST CANCER
     Dates: start: 20021001, end: 20040305
  2. FUROSEMIDE [Concomitant]
  3. POTASSIUM CHLORIDE [Concomitant]
  4. ISOSORBIDE MONONITRATE [Concomitant]
  5. TOPROL-XL [Concomitant]
  6. PRAVACHOL [Concomitant]
  7. ANASTROZOLE [Concomitant]

REACTIONS (6)
  - DENTAL CARIES [None]
  - IMPAIRED HEALING [None]
  - OSTEONECROSIS [None]
  - TOOTH ABSCESS [None]
  - TOOTH EXTRACTION [None]
  - TOOTHACHE [None]
